FAERS Safety Report 12404894 (Version 1)
Quarter: 2016Q2

REPORT INFORMATION
  Report Type: Report from Study
  Country: US (occurrence: US)
  Receive Date: 20160525
  Receipt Date: 20160525
  Transmission Date: 20160815
  Serious: Yes (Hospitalization, Other)
  Sender: FDA-Public Use
  Company Number: US-GILEAD-2016-0211718

PATIENT
  Age: 70 Year
  Sex: Female
  Weight: 64.85 kg

DRUGS (27)
  1. AMBRISENTAN [Suspect]
     Active Substance: AMBRISENTAN
     Indication: PRODUCT USED FOR UNKNOWN INDICATION
     Dosage: 5 MG, QD
     Route: 048
     Dates: start: 20150209
  2. NORCO [Concomitant]
     Active Substance: ACETAMINOPHEN\HYDROCODONE BITARTRATE
  3. MULTIVITAMIN                       /00097801/ [Concomitant]
     Active Substance: VITAMINS
  4. FISH OIL [Concomitant]
     Active Substance: FISH OIL
  5. AMBRISENTAN [Suspect]
     Active Substance: AMBRISENTAN
     Dosage: 10 MG, UNK
     Route: 048
  6. TYLENOL [Concomitant]
     Active Substance: ACETAMINOPHEN
  7. VITAMIN C [Concomitant]
     Active Substance: ASCORBIC ACID
  8. CALCIUM CARBONATE. [Concomitant]
     Active Substance: CALCIUM CARBONATE
  9. CYMBALTA [Concomitant]
     Active Substance: DULOXETINE HYDROCHLORIDE
  10. PREVACID [Concomitant]
     Active Substance: LANSOPRAZOLE
  11. RESTASIS [Concomitant]
     Active Substance: CYCLOSPORINE
  12. SPIRONOLACTONE. [Concomitant]
     Active Substance: SPIRONOLACTONE
  13. LYRICA [Concomitant]
     Active Substance: PREGABALIN
  14. MS CONTIN [Concomitant]
     Active Substance: MORPHINE SULFATE
  15. OXYGEN. [Concomitant]
     Active Substance: OXYGEN
  16. ADCIRCA [Concomitant]
     Active Substance: TADALAFIL
  17. XARELTO [Concomitant]
     Active Substance: RIVAROXABAN
  18. FERROUS SULFATE. [Concomitant]
     Active Substance: FERROUS SULFATE
  19. LORAZEPAM. [Concomitant]
     Active Substance: LORAZEPAM
  20. TADALAFIL [Concomitant]
     Active Substance: TADALAFIL
  21. DIGOXIN. [Concomitant]
     Active Substance: DIGOXIN
  22. CARVEDILOL. [Concomitant]
     Active Substance: CARVEDILOL
  23. VITAMIN D3 [Concomitant]
     Active Substance: CHOLECALCIFEROL
  24. MIRALAX [Concomitant]
     Active Substance: POLYETHYLENE GLYCOL 3350
  25. ASPIRIN 81 [Concomitant]
     Active Substance: ASPIRIN
  26. DULOXETINE. [Concomitant]
     Active Substance: DULOXETINE
  27. FUROSEMIDE. [Concomitant]
     Active Substance: FUROSEMIDE

REACTIONS (4)
  - Fluid retention [Unknown]
  - Generalised oedema [Recovered/Resolved]
  - Acute respiratory failure [Recovered/Resolved]
  - Dyspnoea [Recovered/Resolved]

NARRATIVE: CASE EVENT DATE: 20160418
